FAERS Safety Report 25975614 (Version 1)
Quarter: 2025Q4

REPORT INFORMATION
  Report Type: Spontaneous
  Country: GB (occurrence: GB)
  Receive Date: 20251029
  Receipt Date: 20251029
  Transmission Date: 20260118
  Serious: Yes (Other)
  Sender: ESPERION THERAPEUTICS
  Company Number: None

PATIENT

DRUGS (7)
  1. BEMPEDOIC ACID [Suspect]
     Active Substance: BEMPEDOIC ACID
     Indication: Disease risk factor
     Dosage: 180 MG, QD (TAKE ONE DAILY TO REDUCE CARDIOVASCULAR RISK.)
     Route: 065
     Dates: start: 20250812
  2. EPIMAX [ISOPROPYL MYRISTATE;PARAFFIN, LIQUID] [Concomitant]
     Indication: Dry skin
     Dosage: UNK, (USE FREQUENTLY TO MOISTURISE DRY SKIN, DO NOT U...)
     Route: 065
     Dates: start: 20250826
  3. PROPRANOLOL [Concomitant]
     Active Substance: PROPRANOLOL HYDROCHLORIDE
     Indication: Anxiety
     Dosage: 1 DOSAGE FORM, ONCE EVERY 8HR (TAKE ONE 3 TIMES/DAY FOR ANXIETY SYMPTOMS, AS R...)
     Route: 065
     Dates: start: 20240227
  4. BETAMETHASONE VALERATE [Concomitant]
     Active Substance: BETAMETHASONE VALERATE
     Indication: Product used for unknown indication
     Dosage: UNK, (APPLY TO THE AFFECTED AREA(S) ON THE BODY ONCE ...)
     Route: 065
     Dates: start: 20241224
  5. MOMETASONE [Concomitant]
     Active Substance: MOMETASONE
     Indication: Ill-defined disorder
     Dosage: UNK, (APPLY TO THE AFFECTED AREA(S) ON THE LEGS ONCE ...)
     Route: 065
     Dates: start: 20241224
  6. AMLODIPINE [Concomitant]
     Active Substance: AMLODIPINE BESYLATE
     Indication: Hypertension
     Dosage: 1 DOSAGE FORM, QD (TAKE ONE DAILY - REVIEW BP IN 4 WEEKS.)
     Route: 065
     Dates: start: 20250530, end: 20250826
  7. SIMVASTATIN [Concomitant]
     Active Substance: SIMVASTATIN
     Indication: Ill-defined disorder
     Dosage: 1 DOSAGE FORM (TAKE ONE AT NIGHT)
     Route: 065
     Dates: start: 20250730, end: 20250812

REACTIONS (4)
  - Arthralgia [Recovered/Resolved]
  - Fatigue [Recovered/Resolved]
  - Neck pain [Recovered/Resolved]
  - Myalgia [Recovered/Resolved]

NARRATIVE: CASE EVENT DATE: 20250927
